FAERS Safety Report 8507544-1 (Version None)
Quarter: 2012Q3

REPORT INFORMATION
  Report Type: 
  Country: None (occurrence: None)
  Receive Date: 20120713
  Receipt Date: 20120702
  Transmission Date: 20120928
  Serious: Yes (Death, Life-Threatening, Hospitalization, Other)
  Sender: FDA-Public Use
  Company Number: US-009507513-2012SP032791

PATIENT

DRUGS (13)
  1. ASPIRIN [Concomitant]
     Dosage: 81 MG, QD
     Dates: start: 20090101
  2. LASIX [Concomitant]
     Dosage: 20 MG, QD
     Dates: start: 20120501
  3. DULERA [Suspect]
     Indication: ASTHMA
     Dosage: INHALATION, 200/5, BID
     Route: 055
     Dates: start: 20120418, end: 20120503
  4. NEXIUM [Concomitant]
     Dosage: 40 MG, BID
     Dates: start: 20110101
  5. SIMVASTATIN TABLETS, USP [Concomitant]
     Dosage: 10 MG, QD
     Route: 048
     Dates: start: 20111001
  6. VITAMINS (UNSPECIFIED) [Concomitant]
     Dosage: 1 TABLET DAILY
     Dates: start: 20100101
  7. LOVAZA [Concomitant]
     Dosage: 100 MG, BID
     Dates: start: 20080101
  8. MIRAPEX [Concomitant]
     Dosage: 2 MG, QH
     Dates: start: 20100101
  9. SINGULAIR [Concomitant]
     Dosage: 10 MG, QD
     Dates: start: 20100101
  10. KEPPRA [Concomitant]
     Indication: CONVULSION
  11. VERAPAMIL [Concomitant]
     Dosage: 180 MG, UNK
     Dates: start: 20110901
  12. REGLAN [Concomitant]
     Dosage: 10 MG, TID
     Route: 048
     Dates: start: 20120301
  13. NORCO [Concomitant]
     Dosage: UNK, PRN

REACTIONS (3)
  - PULMONARY EMBOLISM [None]
  - NEPHROLITHIASIS [None]
  - COMPLEX PARTIAL SEIZURES [None]
